FAERS Safety Report 23092161 (Version 1)
Quarter: 2023Q4

REPORT INFORMATION
  Report Type: Spontaneous
  Country: BR (occurrence: BR)
  Receive Date: 20231021
  Receipt Date: 20231021
  Transmission Date: 20240110
  Serious: Yes (Other)
  Sender: FDA-Public Use
  Company Number: BR-002147023-NVSC2023BR009310

PATIENT
  Sex: Female
  Weight: 87 kg

DRUGS (8)
  1. AFINITOR [Suspect]
     Active Substance: EVEROLIMUS
     Indication: Metastases to liver
     Dosage: UNK (ON ALTERNATE DAYS ONE TABLET ON ONE DAY, TWO TABLETS ON OTHER DAY, BOX OF 30 TABLETS), (MANUFAC
     Route: 065
     Dates: start: 2022
  2. AFINITOR [Suspect]
     Active Substance: EVEROLIMUS
     Dosage: UNK, (1 TABLET A DAY ALTERNATED WITH 2 TABLETS A DAY CONTINUOUSLY)
     Route: 065
     Dates: start: 202201
  3. AFINITOR [Suspect]
     Active Substance: EVEROLIMUS
     Dosage: 5 MG  (BOX WITH 30 TABLETS, ALTERNATE DAYS BETWEEN 1 AND 2 TABLETS)
     Route: 065
  4. AFINITOR [Suspect]
     Active Substance: EVEROLIMUS
     Indication: Pancreatic neuroendocrine tumour
     Dosage: UNK (2 TABLETS PER DAY ALTERNATING WITH 1 TABLET PER DAY, MANUFACTURING DATE: 31 MAR 2023)
     Route: 065
     Dates: start: 2018
  5. ESCITALOPRAM [Suspect]
     Active Substance: ESCITALOPRAM OXALATE
     Dosage: 1 DOSAGE FORM, QD
     Route: 065
  6. ESCITALOPRAM [Suspect]
     Active Substance: ESCITALOPRAM OXALATE
     Indication: Anxiety
     Dosage: 10 MG, QD (ONE TABLET PER DAY)
     Route: 065
  7. LEVOTHYROXINE [Concomitant]
     Active Substance: LEVOTHYROXINE
     Dosage: 25 MG, QD (1 TABLET PER DAY)
     Route: 065
  8. LEVOTHYROXINE [Concomitant]
     Active Substance: LEVOTHYROXINE
     Indication: Thyroid hormone replacement therapy
     Dosage: 38 UG, QD (ONE TABLET IN THE FAST)
     Route: 065

REACTIONS (18)
  - Cholecystitis [Unknown]
  - Diabetes mellitus [Unknown]
  - Nail disorder [Unknown]
  - Onychoclasis [Unknown]
  - Pain of skin [Not Recovered/Not Resolved]
  - Inflammation [Recovering/Resolving]
  - Onychomalacia [Unknown]
  - Onychalgia [Unknown]
  - Back pain [Unknown]
  - Pigmentation disorder [Recovering/Resolving]
  - Blister [Unknown]
  - Anxiety [Unknown]
  - Rash pruritic [Recovering/Resolving]
  - Skin atrophy [Unknown]
  - Hair texture abnormal [Unknown]
  - Blood cholesterol abnormal [Unknown]
  - Rash macular [Recovering/Resolving]
  - Pruritus [Unknown]

NARRATIVE: CASE EVENT DATE: 20180101
